FAERS Safety Report 26092258 (Version 1)
Quarter: 2025Q4

REPORT INFORMATION
  Report Type: Spontaneous
  Country: US (occurrence: US)
  Receive Date: 20251126
  Receipt Date: 20251126
  Transmission Date: 20260117
  Serious: Yes (Other)
  Sender: STEMLINE THERAPEUTICS
  Company Number: US-STEMLINE THERAPEUTICS B.V.-2025-STML-US003984

PATIENT

DRUGS (24)
  1. TAGRAXOFUSP [Suspect]
     Active Substance: TAGRAXOFUSP
     Indication: Acute undifferentiated leukaemia
     Dosage: 12 MG/KG (CYCLE1 DAYS 4-6)
     Route: 042
     Dates: start: 20251020, end: 20251022
  2. AZACITIDINE [Suspect]
     Active Substance: AZACITIDINE
     Indication: Acute undifferentiated leukaemia
     Dosage: 75 MG/M2 (CYCLE 1 DAYS 1-7)
     Route: 042
     Dates: start: 20251017, end: 20251023
  3. VENETOCLAX [Suspect]
     Active Substance: VENETOCLAX
     Indication: Acute undifferentiated leukaemia
     Dosage: 240 MG/M2, DAILY CYCLE 1 DAYS 1-7)
     Route: 048
     Dates: start: 20251017, end: 20251023
  4. VENETOCLAX [Suspect]
     Active Substance: VENETOCLAX
     Dosage: 240 MG/M2, DAYS 8-21
     Route: 048
     Dates: start: 20251024, end: 20251106
  5. REVUMENIB [Suspect]
     Active Substance: REVUMENIB
     Indication: Acute undifferentiated leukaemia
     Dosage: 95 MG/M2, BID (CYCLE 1 DAYS 1-7)
     Route: 048
     Dates: start: 20251017, end: 20251023
  6. REVUMENIB [Suspect]
     Active Substance: REVUMENIB
     Dosage: 95 MG/M2, BID (CYCLE 2,3  DAYS 8-21)
     Route: 048
     Dates: start: 20251024, end: 20251106
  7. REVUMENIB [Suspect]
     Active Substance: REVUMENIB
     Dosage: 95 MG/M2, BID (DAY 28)
     Route: 048
     Dates: start: 20251113
  8. CYTARABINE [Suspect]
     Active Substance: CYTARABINE
     Indication: Acute undifferentiated leukaemia
     Dosage: 18 MG (DAY 1)
     Route: 065
     Dates: start: 20251017
  9. CYTARABINE [Suspect]
     Active Substance: CYTARABINE
     Dosage: 18 MG (DAY 28)
     Route: 065
     Dates: start: 20251113
  10. METHOTREXATE [Suspect]
     Active Substance: METHOTREXATE
     Indication: Acute undifferentiated leukaemia
     Dosage: 6 MG (DAY1)
     Route: 065
     Dates: start: 20251017
  11. METHOTREXATE [Suspect]
     Active Substance: METHOTREXATE
     Dosage: 6 MG (DAY28)
     Route: 065
     Dates: start: 20251113
  12. HYDROCORTISONE [Suspect]
     Active Substance: HYDROCORTISONE
     Indication: Acute undifferentiated leukaemia
     Dosage: 12 MG (DAY1)
     Route: 065
     Dates: start: 20251017
  13. HYDROCORTISONE [Suspect]
     Active Substance: HYDROCORTISONE
     Dosage: 12 MG (DAY1)
     Route: 065
     Dates: start: 20251113
  14. ACETAMINOPHEN [Concomitant]
     Active Substance: ACETAMINOPHEN
     Indication: Pain
     Dosage: 160 MG, PRN
     Route: 048
     Dates: start: 20251005
  15. CHOLECALCIFEROL [Concomitant]
     Active Substance: CHOLECALCIFEROL
     Indication: Vitamin supplementation
     Dosage: 25 UG, DAILY
     Route: 048
     Dates: start: 20250728
  16. CLOBAZAM [Concomitant]
     Active Substance: CLOBAZAM
     Indication: Seizure prophylaxis
     Dosage: 2.5 MG, DAILY
     Route: 048
     Dates: start: 20250819, end: 20251105
  17. CLOTRIMAZOLE [Concomitant]
     Active Substance: CLOTRIMAZOLE
     Indication: Dermatitis diaper
     Dosage: 1 %, BID (PRN)
     Route: 061
     Dates: start: 20251005
  18. GRANISETRON [Concomitant]
     Active Substance: GRANISETRON
     Indication: Antiemetic supportive care
     Dosage: 0.2 MG, BID (Q12H)
     Route: 042
     Dates: start: 20250802, end: 20251024
  19. LEVETIRACETAM [Concomitant]
     Active Substance: LEVETIRACETAM
     Indication: Seizure prophylaxis
     Dosage: 300 MG, BID
     Route: 048
     Dates: start: 20250817
  20. LEVOFLOXACIN [Concomitant]
     Active Substance: LEVOFLOXACIN
     Indication: Antibiotic prophylaxis
     Dosage: 90 MG, BID
     Route: 048
     Dates: start: 20251005, end: 20251108
  21. PENTAMIDINE [Concomitant]
     Active Substance: PENTAMIDINE
     Indication: Prophylaxis
     Dosage: 40 MG, MONTHLY
     Route: 042
     Dates: start: 20250821
  22. SENNA [Concomitant]
     Active Substance: SENNOSIDES
     Indication: Constipation
     Dosage: 1.25 ML, DAILY
     Route: 048
     Dates: start: 20251016
  23. VORICONAZOLE [Concomitant]
     Active Substance: VORICONAZOLE
     Indication: Antifungal prophylaxis
     Dosage: 100 MG, TID
     Route: 048
     Dates: start: 20250731
  24. DIPHENHYDRAMINE [Concomitant]
     Active Substance: DIPHENHYDRAMINE
     Indication: Premedication
     Dosage: 10 MG, PRN
     Route: 041
     Dates: start: 20251018

REACTIONS (9)
  - Electrocardiogram QT prolonged [Not Recovered/Not Resolved]
  - Febrile neutropenia [Recovered/Resolved]
  - Hypoalbuminaemia [Not Recovered/Not Resolved]
  - Device related infection [Not Recovered/Not Resolved]
  - Vascular access complication [Not Recovered/Not Resolved]
  - Diarrhoea [Recovered/Resolved]
  - Vomiting [Recovered/Resolved]
  - Diarrhoea [Recovered/Resolved]
  - Off label use [Unknown]

NARRATIVE: CASE EVENT DATE: 20251020
